FAERS Safety Report 6135611-9 (Version None)
Quarter: 2009Q1

REPORT INFORMATION
  Report Type: 
  Country: None (occurrence: None)
  Receive Date: 20090327
  Receipt Date: 20090320
  Transmission Date: 20090719
  Serious: Yes (Other)
  Sender: FDA-Public Use
  Company Number: IN-ABBOTT-09P-078-0563599-00

PATIENT
  Age: 26 Year
  Sex: Female

DRUGS (5)
  1. VALPROATE SODIUM [Suspect]
     Indication: MENINGITIS TUBERCULOUS
     Route: 065
  2. VALPROATE SODIUM [Suspect]
     Indication: GRAND MAL CONVULSION
  3. ANTI-TUBERCULAR THERAPY [Concomitant]
     Indication: MENINGITIS TUBERCULOUS
     Dosage: UNKNOWN
  4. ANTI-TUBERCULAR THERAPY [Concomitant]
     Indication: GRAND MAL CONVULSION
  5. CLOBAZAM [Concomitant]
     Indication: DRUG USE FOR UNKNOWN INDICATION

REACTIONS (3)
  - HYPERAMMONAEMIA [None]
  - METABOLIC ENCEPHALOPATHY [None]
  - MOOD ALTERED [None]
